FAERS Safety Report 20757108 (Version 1)
Quarter: 2022Q2

REPORT INFORMATION
  Report Type: Spontaneous
  Country: US (occurrence: US)
  Receive Date: 20220427
  Receipt Date: 20220427
  Transmission Date: 20220721
  Serious: Yes (Death)
  Sender: FDA-Public Use
  Company Number: US-PFIZER INC-202200584397

PATIENT
  Age: 41 Year
  Sex: Male

DRUGS (6)
  1. AZITHROMYCIN [Suspect]
     Active Substance: AZITHROMYCIN
     Indication: Acanthamoeba infection
     Dosage: UNK
  2. FLUCONAZOLE [Suspect]
     Active Substance: FLUCONAZOLE
     Indication: Acanthamoeba infection
     Dosage: UNK
  3. SILVER SULFADIAZENE [Suspect]
     Active Substance: SILVER SULFADIAZINE
     Indication: Acanthamoeba infection
     Dosage: UNK
  4. VORICONAZOLE [Suspect]
     Active Substance: VORICONAZOLE
     Indication: Acanthamoeba infection
     Dosage: UNK
  5. PENTAMIDINE [Suspect]
     Active Substance: PENTAMIDINE
     Indication: Acanthamoeba infection
     Dosage: UNK
  6. FLUCYTOSINE [Suspect]
     Active Substance: FLUCYTOSINE
     Indication: Acanthamoeba infection
     Dosage: UNK

REACTIONS (2)
  - Drug ineffective for unapproved indication [Fatal]
  - Off label use [Fatal]
